FAERS Safety Report 12904487 (Version 2)
Quarter: 2016Q4

REPORT INFORMATION
  Report Type: Report from Study
  Country: US (occurrence: US)
  Receive Date: 20161102
  Receipt Date: 20161108
  Transmission Date: 20170207
  Serious: Yes (Other)
  Sender: FDA-Public Use
  Company Number: US-BAXALTA-2016BLT007773

PATIENT
  Age: 64 Year
  Sex: Female
  Weight: 77 kg

DRUGS (4)
  1. GAMMAGARD LIQUID [Suspect]
     Active Substance: HUMAN IMMUNOGLOBULIN G
     Dosage: 50 G, EVERY 3 WK
     Route: 042
     Dates: start: 2012
  2. GAMMAGARD LIQUID [Suspect]
     Active Substance: HUMAN IMMUNOGLOBULIN G
     Dosage: 40 G, UNK
     Route: 042
     Dates: start: 2012, end: 2012
  3. GAMMAGARD LIQUID [Suspect]
     Active Substance: HUMAN IMMUNOGLOBULIN G
     Indication: IMMUNODEFICIENCY COMMON VARIABLE
     Dosage: 60 G, EVERY 3 WK
     Route: 042
     Dates: start: 2015, end: 201509
  4. GAMMAGARD LIQUID [Suspect]
     Active Substance: HUMAN IMMUNOGLOBULIN G
     Dosage: 50 G, EVERY 3 WK
     Dates: start: 2016

REACTIONS (4)
  - Upper respiratory tract infection [Recovering/Resolving]
  - Pneumonia [Recovered/Resolved]
  - Myocardial infarction [Recovered/Resolved]
  - Malaise [Recovered/Resolved]

NARRATIVE: CASE EVENT DATE: 2012
